FAERS Safety Report 7750950-3 (Version None)
Quarter: 2011Q3

REPORT INFORMATION
  Report Type: 
  Country: None (occurrence: None)
  Receive Date: 20110914
  Receipt Date: 20110902
  Transmission Date: 20111222
  Serious: Yes (Other)
  Sender: FDA-Public Use
  Company Number: US-ELI_LILLY_AND_COMPANY-US201107000816

PATIENT
  Age: 67 Year
  Sex: Female
  Weight: 62.132 kg

DRUGS (2)
  1. HUMALOG [Suspect]
     Indication: TYPE 1 DIABETES MELLITUS
     Dosage: UNK, UNKNOWN
     Route: 058
  2. LANTUS [Concomitant]

REACTIONS (8)
  - RETINAL DETACHMENT [None]
  - CATARACT [None]
  - RETCHING [None]
  - VISUAL IMPAIRMENT [None]
  - BLOOD GLUCOSE DECREASED [None]
  - BLOOD GLUCOSE INCREASED [None]
  - RETINAL TEAR [None]
  - GLAUCOMA [None]
